FAERS Safety Report 4980748-0 (Version None)
Quarter: 2006Q2

REPORT INFORMATION
  Report Type: 
  Country: None (occurrence: None)
  Receive Date: 20060424
  Receipt Date: 20030605
  Transmission Date: 20061013
  Serious: Yes (Hospitalization, Other)
  Sender: FDA-Public Use
  Company Number: US-MERCK-0306USA00737

PATIENT
  Age: 27 Year
  Sex: Female
  Weight: 91 kg

DRUGS (5)
  1. VIOXX [Suspect]
     Indication: SURGERY
     Route: 048
     Dates: start: 20010827, end: 20010903
  2. VIOXX [Suspect]
     Indication: PAIN IN EXTREMITY
     Route: 048
     Dates: start: 20010827, end: 20010903
  3. CEPHALEXIN [Concomitant]
     Indication: FOOT OPERATION
     Route: 048
  4. PROMETHAZINE HYDROCHLORIDE [Concomitant]
     Route: 065
  5. HYDROCODONE HYDROCHLORIDE [Concomitant]
     Route: 065

REACTIONS (28)
  - ABDOMINAL HAEMATOMA [None]
  - ABDOMINAL PAIN [None]
  - ACUTE SINUSITIS [None]
  - ADVERSE EVENT [None]
  - ANGINA PECTORIS [None]
  - ANXIETY [None]
  - ARTHROPATHY [None]
  - BLOOD PRESSURE INCREASED [None]
  - BRONCHITIS ACUTE [None]
  - BUNION [None]
  - CHEST PAIN [None]
  - CONTUSION [None]
  - CONVULSION [None]
  - DRUG HYPERSENSITIVITY [None]
  - DYSPNOEA [None]
  - FACIAL PALSY [None]
  - FALL [None]
  - FOOT FRACTURE [None]
  - HEADACHE [None]
  - JOINT EFFUSION [None]
  - JOINT SPRAIN [None]
  - MENISCUS LESION [None]
  - MIGRAINE [None]
  - PHARYNGITIS STREPTOCOCCAL [None]
  - ROAD TRAFFIC ACCIDENT [None]
  - TIBIA FRACTURE [None]
  - TONSILLITIS [None]
  - URINARY TRACT INFECTION [None]
